FAERS Safety Report 10006370 (Version 1)
Quarter: 2014Q1

REPORT INFORMATION
  Report Type: Spontaneous
  Country: FR (occurrence: FR)
  Receive Date: 20140313
  Receipt Date: 20140313
  Transmission Date: 20141002
  Serious: Yes (Hospitalization, Other)
  Sender: FDA-Public Use
  Company Number: FR-PFIZER INC-2014069352

PATIENT
  Age: 68 Year
  Sex: Male

DRUGS (11)
  1. ADVIL [Suspect]
     Dosage: UNK
     Dates: start: 20140215, end: 20140223
  2. PREVISCAN [Suspect]
     Indication: ARRHYTHMIA
     Dosage: 10 MG, 1X/DAY
     Dates: end: 20140224
  3. METFORMIN [Concomitant]
  4. DIAMICRON [Concomitant]
  5. CARDENSIEL [Concomitant]
  6. ESIDREX [Concomitant]
  7. COVERSYL [Concomitant]
  8. AMLOR [Concomitant]
  9. EUPRESSYL [Concomitant]
  10. HEMIGOXINE [Concomitant]
  11. PRAVADUAL [Concomitant]

REACTIONS (12)
  - International normalised ratio increased [Recovered/Resolved]
  - Epistaxis [Recovered/Resolved]
  - Asthenia [Unknown]
  - Dyspnoea [Unknown]
  - Filariasis [Unknown]
  - Pneumococcal infection [Unknown]
  - Pleural effusion [Unknown]
  - Purulent discharge [Unknown]
  - Benign oesophageal neoplasm [Unknown]
  - Cholestasis [Unknown]
  - Hepatocellular injury [Unknown]
  - Hypoalbuminaemia [Unknown]
